FAERS Safety Report 15012972 (Version 1)
Quarter: 2018Q2

REPORT INFORMATION
  Report Type: Report from Study
  Country: CZ (occurrence: CZ)
  Receive Date: 20180614
  Receipt Date: 20180614
  Transmission Date: 20180711
  Serious: Yes (Hospitalization, Other)
  Sender: FDA-Public Use
  Company Number: CZ-BAYER-2018-108910

PATIENT
  Age: 36 Year
  Sex: Female
  Weight: 72 kg

DRUGS (6)
  1. JAYDESS [Suspect]
     Active Substance: LEVONORGESTREL
     Indication: METRORRHAGIA
     Dosage: 14 MCG/24HR, CONT
     Route: 015
     Dates: start: 20180126, end: 20180415
  2. FURON [Concomitant]
     Active Substance: FUROSEMIDE
     Route: 048
  3. WARFARIN [Concomitant]
     Active Substance: WARFARIN
     Route: 048
  4. CARVEDILOL. [Concomitant]
     Active Substance: CARVEDILOL
     Route: 048
  5. GLUCOSAMIN [Concomitant]
     Route: 048
  6. VEROSPIRON [Concomitant]
     Active Substance: SPIRONOLACTONE
     Route: 048

REACTIONS (4)
  - Device expulsion [Recovered/Resolved]
  - Menorrhagia [Recovered/Resolved]
  - Hypovolaemic shock [Recovered/Resolved]
  - Off label use of device [None]

NARRATIVE: CASE EVENT DATE: 201804
